FAERS Safety Report 20669725 (Version 2)
Quarter: 2023Q1

REPORT INFORMATION
  Report Type: Spontaneous
  Country: US (occurrence: US)
  Receive Date: 20220404
  Receipt Date: 20230124
  Transmission Date: 20230417
  Serious: No
  Sender: FDA-Public Use
  Company Number: US-PFIZER INC-202101037384

PATIENT
  Age: 34 Year
  Sex: Female

DRUGS (1)
  1. XELJANZ XR [Suspect]
     Active Substance: TOFACITINIB CITRATE
     Dosage: 11 MG, 1X/DAY

REACTIONS (5)
  - Product dose omission issue [Unknown]
  - Pain [Unknown]
  - Condition aggravated [Unknown]
  - Arthralgia [Unknown]
  - Swelling [Unknown]
